FAERS Safety Report 8406905-9 (Version None)
Quarter: 2012Q2

REPORT INFORMATION
  Report Type: 
  Country: None (occurrence: None)
  Receive Date: 20120529
  Receipt Date: 20120515
  Transmission Date: 20120825
  Serious: Yes (Other)
  Sender: FDA-Public Use
  Company Number: GB-DEXPHARM-20120556

PATIENT
  Age: 69 Year
  Sex: Female

DRUGS (5)
  1. OMEPRAZOLE [Suspect]
     Dates: start: 20120503
  2. ZOPICLONE [Concomitant]
  3. ATORVASTATIN CALCIUM [Concomitant]
  4. IBUPROFEN [Concomitant]
  5. FLUOXETINE [Concomitant]

REACTIONS (2)
  - LIP BLISTER [None]
  - LIP ULCERATION [None]
